FAERS Safety Report 6455594-1 (Version None)
Quarter: 2009Q4

REPORT INFORMATION
  Report Type: 
  Country: None (occurrence: None)
  Receive Date: 20091125
  Receipt Date: 20090831
  Transmission Date: 20100525
  Serious: No
  Sender: FDA-Public Use
  Company Number: US-ABBOTT-09P-163-0594502-00

PATIENT
  Sex: Female
  Weight: 69.916 kg

DRUGS (7)
  1. SIMCOR [Suspect]
     Indication: HIGH DENSITY LIPOPROTEIN DECREASED
     Dosage: 500/20 MILLIGRAMS
     Dates: start: 20090826
  2. ASPIRIN [Concomitant]
     Indication: DRUG USE FOR UNKNOWN INDICATION
     Route: 048
  3. TRIAMTERENE AND HYDROCHLOROTHIAZIDE [Concomitant]
     Indication: DRUG USE FOR UNKNOWN INDICATION
     Route: 048
  4. FISH OIL [Concomitant]
     Indication: DRUG USE FOR UNKNOWN INDICATION
     Route: 048
  5. CALCIUM [Concomitant]
     Indication: DRUG USE FOR UNKNOWN INDICATION
     Route: 048
  6. VITAMIN D [Concomitant]
     Indication: DRUG USE FOR UNKNOWN INDICATION
     Dosage: NOT REPORTED PRESCRIPTION DOSE
     Route: 048
  7. MULTI-VITAMINS [Concomitant]
     Indication: DRUG USE FOR UNKNOWN INDICATION
     Route: 048

REACTIONS (1)
  - PRURITUS [None]
